FAERS Safety Report 9148898 (Version 1)
Quarter: 2013Q1

REPORT INFORMATION
  Report Type: Spontaneous
  Country: NO (occurrence: None)
  Receive Date: 20130131
  Receipt Date: 20130131
  Transmission Date: 20140127
  Serious: Yes (Hospitalization)
  Sender: FDA-Public Use
  Company Number: 1575736

PATIENT
  Age: 54 Year
  Sex: Female

DRUGS (14)
  1. OXALIPLATIN [Suspect]
     Indication: COLORECTAL CANCER
     Dosage: SOLUTION NOS (UNKNOWN) INTRAVENOUS (NOT OTHERWISE SPECIFIED)
     Route: 042
  2. FLUOROURACIL [Suspect]
     Indication: COLORECTAL CANCER
  3. BEVACIZUMAB [Concomitant]
  4. CONVALLARIA MAJAL W/CRATAEG LAEVIG/PROXYPHILL [Concomitant]
  5. DIURAL /00016901 [Concomitant]
  6. OXYNORM [Concomitant]
  7. MORPHINE [Concomitant]
  8. DUPHALAC  /00163401/ [Concomitant]
  9. MEDROL  /00049601/ [Concomitant]
  10. OXYCONTIN [Concomitant]
  11. FRAGMIN [Concomitant]
  12. PANODIL [Concomitant]
  13. MULTIVITAMINS [Concomitant]
  14. SOMAC [Concomitant]

REACTIONS (4)
  - Femoral neck fracture [None]
  - Deep vein thrombosis [None]
  - Febrile neutropenia [None]
  - Fall [None]
